FAERS Safety Report 14850196 (Version 1)
Quarter: 2018Q2

REPORT INFORMATION
  Report Type: Spontaneous
  Country: ES (occurrence: ES)
  Receive Date: 20180505
  Receipt Date: 20180505
  Transmission Date: 20180711
  Serious: Yes (Life-Threatening, Hospitalization)
  Sender: FDA-Public Use
  Company Number: ES-ROCHE-2115704

PATIENT
  Age: 64 Year
  Sex: Male

DRUGS (6)
  1. TREVICTA [Interacting]
     Active Substance: PALIPERIDONE PALMITATE
     Indication: SCHIZOPHRENIA
     Dosage: MOST RECENT DOSE ON 12/FEB/2018
     Route: 030
     Dates: start: 20170227
  2. PAROXETINE. [Interacting]
     Active Substance: PAROXETINE
     Indication: SCHIZOPHRENIA
     Dosage: MOST RECENT DOSE ON 11/MAR/2018
     Route: 048
     Dates: start: 20160615
  3. QUETIAPINA [Interacting]
     Active Substance: QUETIAPINE
     Indication: SCHIZOPHRENIA
     Dosage: MOST RECENT DOSE ON 11/MAR/2018
     Route: 048
     Dates: start: 20160615
  4. DIAZEPAM. [Suspect]
     Active Substance: DIAZEPAM
     Indication: MUSCULOSKELETAL PAIN
     Dosage: MOST RECENT DOSE ON 11/MAR/2018
     Route: 048
     Dates: start: 20180309
  5. AKINETON [Concomitant]
     Active Substance: BIPERIDEN HYDROCHLORIDE
     Indication: SCHIZOPHRENIA
     Dosage: MOST RECENT DOSE ON 11/MAR/2018
     Route: 048
     Dates: start: 20160615
  6. ARKETIN [Interacting]
     Active Substance: RISPERIDONE
     Indication: SCHIZOPHRENIA
     Route: 048
     Dates: start: 20160615

REACTIONS (1)
  - Coma [Recovered/Resolved]

NARRATIVE: CASE EVENT DATE: 20180311
